FAERS Safety Report 18637778 (Version 1)
Quarter: 2020Q4

REPORT INFORMATION
  Report Type: Spontaneous
  Country: US (occurrence: US)
  Receive Date: 20201219
  Receipt Date: 20201219
  Transmission Date: 20210114
  Serious: No
  Sender: FDA-Public Use
  Company Number: US-DRREDDYS-USA/USA/20/0129674

PATIENT
  Age: 79 Year
  Sex: Male
  Weight: 86.18 kg

DRUGS (2)
  1. ATORVASTATIN TABLETS 10MG, 20 MG, 40 MG (091650) [Suspect]
     Active Substance: ATORVASTATIN
     Indication: BLOOD CHOLESTEROL INCREASED
     Dosage: BY MOUTH
     Route: 048
  2. LIPITOR [Concomitant]
     Active Substance: ATORVASTATIN CALCIUM
     Indication: BLOOD CHOLESTEROL INCREASED
     Dosage: BY MOUTH
     Route: 048

REACTIONS (3)
  - Urticaria [Unknown]
  - Diarrhoea [Unknown]
  - Rash [Unknown]
